FAERS Safety Report 24622224 (Version 1)
Quarter: 2024Q4

REPORT INFORMATION
  Report Type: Spontaneous
  Country: BR (occurrence: BR)
  Receive Date: 20241114
  Receipt Date: 20241114
  Transmission Date: 20250115
  Serious: Yes (Other)
  Sender: NOVO NORDISK
  Company Number: BR-NOVOPROD-1314147

PATIENT
  Age: 520 Month
  Sex: Female

DRUGS (1)
  1. OZEMPIC [Suspect]
     Active Substance: SEMAGLUTIDE
     Indication: Obesity
     Dosage: 18 CLICKS - 0.25MG
     Dates: start: 20240921

REACTIONS (7)
  - Hyperglycaemic crisis [Unknown]
  - Hypoglycaemia [Unknown]
  - Malaise [Unknown]
  - Hypotensive crisis [Unknown]
  - Visual impairment [Not Recovered/Not Resolved]
  - Off label use [Recovered/Resolved]
  - Suspected counterfeit product [Unknown]

NARRATIVE: CASE EVENT DATE: 20240921
